FAERS Safety Report 7583563-7 (Version None)
Quarter: 2011Q2

REPORT INFORMATION
  Report Type: 
  Country: None (occurrence: None)
  Receive Date: 20110527
  Receipt Date: 20101018
  Transmission Date: 20111010
  Serious: Yes (Hospitalization, Other)
  Sender: FDA-Public Use
  Company Number: US2010002003448

PATIENT
  Age: 65 Year
  Sex: Female
  Weight: 87.1 kg

DRUGS (12)
  1. COLACE (DOCUSATE SODIUM) [Concomitant]
  2. BYETTA [Suspect]
     Dosage: 10 UG, 3/D
     Dates: start: 20070523, end: 20080728
  3. ZOLOFT [Concomitant]
  4. FOSAMAX [Concomitant]
  5. ASPIRIN /SCH/ (ACETYLSALICYLIC ACID) [Concomitant]
  6. LISINOPRIL [Concomitant]
  7. METFORMIN HCL [Concomitant]
  8. SIMVASTATIN [Concomitant]
  9. LORTAB [Concomitant]
  10. INSULIN (INSULIN) [Concomitant]
  11. DEMEROL [Concomitant]
  12. EXENATIDE PEN (EXENATIDE PEN) [Concomitant]

REACTIONS (3)
  - OFF LABEL USE [None]
  - PANCREATITIS [None]
  - DRUG PRESCRIBING ERROR [None]
